FAERS Safety Report 23089248 (Version 1)
Quarter: 2023Q4

REPORT INFORMATION
  Report Type: Spontaneous
  Country: JP (occurrence: None)
  Receive Date: 20231020
  Receipt Date: 20231020
  Transmission Date: 20240110
  Serious: Yes (Hospitalization)
  Sender: FDA-Public Use
  Company Number: 2023A236491

PATIENT
  Sex: Male

DRUGS (2)
  1. SYMBICORT [Suspect]
     Active Substance: BUDESONIDE\FORMOTEROL FUMARATE DIHYDRATE
     Indication: Emphysema
     Dosage: 30 DOSES, UNKNOWN FREQUENCY UNKNOWN
     Route: 055
     Dates: start: 2020
  2. SYMBICORT [Suspect]
     Active Substance: BUDESONIDE\FORMOTEROL FUMARATE DIHYDRATE
     Indication: Emphysema
     Dosage: 30 DOSES, UNKNOWN FREQUENCY UNKNOWN
     Route: 055

REACTIONS (5)
  - Fracture [Unknown]
  - Tachyarrhythmia [Recovered/Resolved]
  - Sleep disorder due to general medical condition, insomnia type [Unknown]
  - Dyspnoea [Unknown]
  - Expired product administered [Unknown]
